FAERS Safety Report 8589681-9 (Version None)
Quarter: 2012Q3

REPORT INFORMATION
  Report Type: 
  Country: None (occurrence: None)
  Receive Date: 20120813
  Receipt Date: 20120806
  Transmission Date: 20120928
  Serious: No
  Sender: FDA-Public Use
  Company Number: US-009507513-1208USA003083

PATIENT

DRUGS (8)
  1. INTEGRILIN [Suspect]
     Dosage: 180 MICROGRAM PER KILOGRAM, ONCE
     Route: 040
  2. INTEGRILIN [Suspect]
     Dosage: UNK
  3. INTEGRILIN [Suspect]
     Dosage: 2 MICROGRAM/KG/MIN
     Route: 041
  4. CARBOPLATIN [Concomitant]
  5. ASPIRIN [Concomitant]
  6. HEPARIN SODIUM [Concomitant]
  7. TAXOTERE [Concomitant]
  8. CLOPIDOGREL [Concomitant]

REACTIONS (2)
  - THROMBOSIS [None]
  - THROMBOCYTOPENIA [None]
